FAERS Safety Report 13739960 (Version 1)
Quarter: 2017Q3

REPORT INFORMATION
  Report Type: Spontaneous
  Country: CA (occurrence: CA)
  Receive Date: 20170711
  Receipt Date: 20170711
  Transmission Date: 20171127
  Serious: Yes (Other)
  Sender: FDA-Public Use
  Company Number: CA-AMGEN-CANSL2017091434

PATIENT
  Age: 78 Year
  Sex: Female

DRUGS (6)
  1. ASA [Concomitant]
     Active Substance: ASPIRIN
  2. NEXIUM [Concomitant]
     Active Substance: ESOMEPRAZOLE MAGNESIUM
  3. REPATHA [Suspect]
     Active Substance: EVOLOCUMAB
     Indication: PRODUCT USED FOR UNKNOWN INDICATION
     Dosage: 140 MG/ML, UNK
     Route: 065
     Dates: start: 20170509
  4. ZOPICLONE [Concomitant]
     Active Substance: ZOPICLONE
  5. RAMIPRIL. [Concomitant]
     Active Substance: RAMIPRIL
  6. PLAVIX [Concomitant]
     Active Substance: CLOPIDOGREL BISULFATE

REACTIONS (5)
  - Vascular graft [Unknown]
  - Rash pruritic [Not Recovered/Not Resolved]
  - Stent placement [Unknown]
  - Fall [Unknown]
  - Contusion [Unknown]

NARRATIVE: CASE EVENT DATE: 2017
